FAERS Safety Report 22385735 (Version 1)
Quarter: 2023Q2

REPORT INFORMATION
  Report Type: Spontaneous
  Country: US (occurrence: None)
  Receive Date: 20230530
  Receipt Date: 20230530
  Transmission Date: 20230722
  Serious: Yes (Hospitalization)
  Sender: FDA-Public Use
  Company Number: None

PATIENT
  Age: 45 Year
  Sex: Female

DRUGS (1)
  1. KESIMPTA [Suspect]
     Active Substance: OFATUMUMAB
     Route: 058

REACTIONS (4)
  - Adverse drug reaction [None]
  - Herpes zoster [None]
  - Throat tightness [None]
  - Gait disturbance [None]

NARRATIVE: CASE EVENT DATE: 20230330
